FAERS Safety Report 4332030-2 (Version None)
Quarter: 2004Q2

REPORT INFORMATION
  Report Type: 
  Country: None (occurrence: None)
  Receive Date: 20040405
  Receipt Date: 20040316
  Transmission Date: 20050107
  Serious: Yes (Other)
  Sender: FDA-Public Use
  Company Number: PHRM2004FR01312

PATIENT
  Age: 68 Year
  Sex: Male
  Weight: 40 kg

DRUGS (2)
  1. LAMISIL [Suspect]
     Indication: SKIN CANDIDA
     Dosage: 250 MG, QD
     Route: 048
     Dates: start: 20040217, end: 20040301
  2. HYTACAND [Concomitant]
     Route: 048

REACTIONS (4)
  - INTERTRIGO [None]
  - OEDEMA PERIPHERAL [None]
  - PRURITUS [None]
  - RASH [None]
